FAERS Safety Report 6283769-3 (Version None)
Quarter: 2009Q3

REPORT INFORMATION
  Report Type: 
  Country: None (occurrence: None)
  Receive Date: 20090724
  Receipt Date: 20070327
  Transmission Date: 20100115
  Serious: Yes (Hospitalization, Other)
  Sender: FDA-Public Use
  Company Number: US-ASTRAZENECA-2005UW15595

PATIENT
  Age: 15 Year
  Sex: Female
  Weight: 95.3 kg

DRUGS (32)
  1. SEROQUEL [Suspect]
     Route: 048
     Dates: start: 20020424, end: 20020815
  2. SEROQUEL [Suspect]
     Route: 048
     Dates: start: 20020815, end: 20021212
  3. SEROQUEL [Suspect]
     Route: 048
     Dates: start: 20021212, end: 20030319
  4. SEROQUEL [Suspect]
     Dosage: 25-200 MG
     Route: 048
     Dates: start: 20020318
  5. RISPERDAL [Suspect]
     Dates: start: 20020301, end: 20040601
  6. ZYPREXA [Suspect]
     Dates: start: 20020301, end: 20040601
  7. EFFEXOR XR [Concomitant]
  8. CONCERTA [Concomitant]
  9. DEPAKOTE [Concomitant]
  10. PROZAC [Concomitant]
  11. TRILEPTAL [Concomitant]
  12. PAXIL [Concomitant]
  13. ZANTAC [Concomitant]
  14. KLONOPIN [Concomitant]
  15. ORTHO TRI-CYCLEN [Concomitant]
  16. CLONIDINE [Concomitant]
     Route: 048
  17. PEPCID [Concomitant]
  18. BENADRYL [Concomitant]
  19. VITAMIN B-12 [Concomitant]
  20. REMERON [Concomitant]
     Indication: INSOMNIA
  21. REMERON [Concomitant]
     Indication: AFFECTIVE DISORDER
  22. CEFACLOR [Concomitant]
  23. OVRAL [Concomitant]
  24. TYLENOL [Concomitant]
  25. ABILIFY [Concomitant]
  26. TENEX [Concomitant]
  27. TRAZODONE HYDROCHLORIDE [Concomitant]
  28. MYLANTA [Concomitant]
  29. BENZTROPINE MESYLATE [Concomitant]
  30. CHLORPROMAZINE [Concomitant]
  31. MAALOX [Concomitant]
  32. TRINESSA [Concomitant]

REACTIONS (23)
  - ABDOMINAL PAIN [None]
  - AGGRESSION [None]
  - AGITATION [None]
  - ANGER [None]
  - ARTHRALGIA [None]
  - CHEST PAIN [None]
  - DEPRESSION [None]
  - DIABETES MELLITUS [None]
  - IRRITABILITY [None]
  - LIPID METABOLISM DISORDER [None]
  - MUSCULOSKELETAL PAIN [None]
  - MYALGIA [None]
  - OEDEMA PERIPHERAL [None]
  - PAIN [None]
  - PANIC ATTACK [None]
  - PNEUMONIA [None]
  - POLYDIPSIA [None]
  - POST-TRAUMATIC STRESS DISORDER [None]
  - PYREXIA [None]
  - SELF-INJURIOUS IDEATION [None]
  - SUICIDAL IDEATION [None]
  - SUICIDE ATTEMPT [None]
  - WEIGHT INCREASED [None]
